FAERS Safety Report 5936755-4 (Version None)
Quarter: 2008Q4

REPORT INFORMATION
  Report Type: 
  Country: None (occurrence: None)
  Receive Date: 20081021
  Receipt Date: 20081008
  Transmission Date: 20090506
  Serious: Yes (Hospitalization, Other)
  Sender: FDA-Public Use
  Company Number: THYM-11500

PATIENT
  Sex: Female

DRUGS (3)
  1. THYMOGLOBULIN [Suspect]
     Indication: KIDNEY TRANSPLANT REJECTION
     Dosage: INTRAVENOUS
     Route: 042
  2. AZATHIOPRINE [Concomitant]
  3. TACROLIMUS [Concomitant]

REACTIONS (8)
  - CAESAREAN SECTION [None]
  - DRUG EXPOSURE DURING PREGNANCY [None]
  - FOETAL DISTRESS SYNDROME [None]
  - GRAFT LOSS [None]
  - NO THERAPEUTIC RESPONSE [None]
  - PANCREAS TRANSPLANT REJECTION [None]
  - RENAL GRAFT LOSS [None]
  - URINARY TRACT INFECTION [None]
